FAERS Safety Report 17686769 (Version 1)
Quarter: 2020Q2

REPORT INFORMATION
  Report Type: Spontaneous
  Country: PT (occurrence: PT)
  Receive Date: 20200421
  Receipt Date: 20200421
  Transmission Date: 20200714
  Serious: Yes (Other)
  Sender: FDA-Public Use
  Company Number: PT-JNJFOC-20200418104

PATIENT

DRUGS (1)
  1. PARACETAMOL [Suspect]
     Active Substance: ACETAMINOPHEN
     Indication: SKIN TEST
     Route: 065

REACTIONS (16)
  - Hypotension [Unknown]
  - Gastrointestinal disorder [Unknown]
  - Drug hypersensitivity [Unknown]
  - Off label use [Unknown]
  - Rash maculo-papular [Unknown]
  - Respiratory symptom [Unknown]
  - Cardiovascular symptom [Unknown]
  - Adverse event [Unknown]
  - Product use in unapproved indication [Unknown]
  - Angioedema [Unknown]
  - Bronchial hyperreactivity [Unknown]
  - Upper respiratory tract irritation [Unknown]
  - Fixed eruption [Unknown]
  - Circulatory collapse [Unknown]
  - Cutaneous symptom [Unknown]
  - Urticaria [Unknown]
